FAERS Safety Report 5589794-X (Version None)
Quarter: 2008Q1

REPORT INFORMATION
  Report Type: 
  Country: None (occurrence: None)
  Receive Date: 20080110
  Receipt Date: 20080110
  Transmission Date: 20080703
  Serious: Yes (Hospitalization)
  Sender: FDA-Public Use
  Company Number: None

PATIENT
  Sex: Female
  Weight: 100.2 kg

DRUGS (4)
  1. FLUOROURACIL [Suspect]
     Dosage: 5440 MG
     Dates: end: 20071226
  2. BEVACIZUMAB (RHUMAB VEGF) [Suspect]
     Dosage: 470 MG
     Dates: end: 20071226
  3. CAMPTOSAR [Suspect]
     Dosage: 340 MG
     Dates: end: 20071226
  4. LEUCOVORIN CALCIUM [Suspect]
     Dosage: 760 MG
     Dates: end: 20071226

REACTIONS (3)
  - ACUTE MYOCARDIAL INFARCTION [None]
  - CARDIAC FAILURE CONGESTIVE [None]
  - DRUG EFFECT DECREASED [None]
